FAERS Safety Report 19256142 (Version 1)
Quarter: 2021Q2

REPORT INFORMATION
  Report Type: Spontaneous
  Country: CN (occurrence: CN)
  Receive Date: 20210513
  Receipt Date: 20210513
  Transmission Date: 20210717
  Serious: Yes (Other)
  Sender: FDA-Public Use
  Company Number: CN-ABBVIE-21K-035-3904411-00

PATIENT

DRUGS (3)
  1. VENETOCLAX. [Suspect]
     Active Substance: VENETOCLAX
     Route: 048
  2. IMBRUVICA [Suspect]
     Active Substance: IBRUTINIB
     Indication: DIFFUSE LARGE B-CELL LYMPHOMA
     Dosage: 4 WEEKS WAS ONE CYCLE
     Route: 048
     Dates: start: 201812, end: 202007
  3. VENETOCLAX. [Suspect]
     Active Substance: VENETOCLAX
     Indication: DIFFUSE LARGE B-CELL LYMPHOMA
     Route: 048
     Dates: start: 201812, end: 202007

REACTIONS (12)
  - Thrombocytopenia [Unknown]
  - Atrial fibrillation [Unknown]
  - Nausea [Unknown]
  - Product use in unapproved indication [Unknown]
  - Rash [Unknown]
  - Haemorrhage [Unknown]
  - Neutropenia [Unknown]
  - Vomiting [Unknown]
  - Off label use [Unknown]
  - Diarrhoea [Unknown]
  - Hepatic enzyme increased [Unknown]
  - Anaemia [Unknown]
